FAERS Safety Report 7626189-9 (Version None)
Quarter: 2011Q3

REPORT INFORMATION
  Report Type: 
  Country: None (occurrence: None)
  Receive Date: 20110721
  Receipt Date: 20110711
  Transmission Date: 20111222
  Serious: Yes (Other)
  Sender: FDA-Public Use
  Company Number: PHHY2010CA57476

PATIENT
  Sex: Female

DRUGS (2)
  1. ZOLEDRONOC ACID [Suspect]
     Indication: OSTEOPOROSIS
     Dosage: 5 MG, UNK
     Dates: start: 20100704
  2. ZOLEDRONOC ACID [Suspect]
     Dosage: 5 MG, UNK
     Route: 042
     Dates: start: 20110707

REACTIONS (7)
  - DIARRHOEA [None]
  - NAUSEA [None]
  - HYPERSENSITIVITY [None]
  - GASTROENTERITIS [None]
  - MUSCULOSKELETAL STIFFNESS [None]
  - GASTROENTERITIS VIRAL [None]
  - VOMITING [None]
